FAERS Safety Report 10082146 (Version 2)
Quarter: 2014Q2

REPORT INFORMATION
  Report Type: Spontaneous
  Country: US (occurrence: US)
  Receive Date: 20140416
  Receipt Date: 20140423
  Transmission Date: 20141212
  Serious: No
  Sender: FDA-Public Use
  Company Number: US-009507513-1404USA008706

PATIENT
  Sex: Female

DRUGS (1)
  1. NEXPLANON [Suspect]
     Dosage: UNK, IN THE ARM
     Route: 059
     Dates: start: 20130305

REACTIONS (2)
  - Device breakage [Unknown]
  - No adverse event [Unknown]
